FAERS Safety Report 8496239 (Version 2)
Quarter: 2013Q2

REPORT INFORMATION
  Report Type: Spontaneous
  Country: ES (occurrence: ES)
  Receive Date: 20120405
  Receipt Date: 20130531
  Transmission Date: 20140414
  Serious: Yes (Hospitalization)
  Sender: FDA-Public Use
  Company Number: ES-JNJFOC-20120401999

PATIENT
  Age: 55 Year
  Sex: Male

DRUGS (6)
  1. ZALDIAR [Suspect]
     Indication: PAIN
     Route: 048
     Dates: start: 20101020, end: 20101026
  2. IBUPROFEN [Suspect]
     Indication: PAIN
     Route: 048
     Dates: start: 20101004, end: 20101026
  3. DICLOFENAC [Suspect]
     Indication: PAIN
     Route: 048
     Dates: start: 20101020, end: 20101026
  4. PARACETAMOL [Concomitant]
     Indication: PAIN
     Route: 048
     Dates: start: 20101004, end: 20101026
  5. KALETRA [Concomitant]
     Indication: HIV INFECTION
     Route: 048
     Dates: end: 20101026
  6. TRUVADA [Concomitant]
     Indication: HIV INFECTION
     Route: 048
     Dates: end: 20101026

REACTIONS (3)
  - Cholestasis [Recovered/Resolved]
  - Jaundice [Unknown]
  - Arthritis bacterial [Unknown]
